FAERS Safety Report 9351337 (Version 1)
Quarter: 2013Q2

REPORT INFORMATION
  Report Type: Report from Study
  Country: IT (occurrence: IT)
  Receive Date: 20130617
  Receipt Date: 20130617
  Transmission Date: 20140414
  Serious: Yes (Congenital Anomaly)
  Sender: FDA-Public Use
  Company Number: IT-UCBSA-088527

PATIENT
  Sex: Female
  Weight: 3.31 kg

DRUGS (1)
  1. LEVETIRACETAM [Suspect]
     Dosage: DOSE:2000 MG/DAY
     Route: 064

REACTIONS (2)
  - Cleft palate [Unknown]
  - Foetal exposure during pregnancy [Recovered/Resolved]
